FAERS Safety Report 6213355-2 (Version None)
Quarter: 2009Q2

REPORT INFORMATION
  Report Type: 
  Country: None (occurrence: None)
  Receive Date: 20090603
  Receipt Date: 20090520
  Transmission Date: 20091009
  Serious: Yes (Death)
  Sender: FDA-Public Use
  Company Number: JP-ABBOTT-09P-087-0577119-00

PATIENT
  Age: 42 Year
  Sex: Female

DRUGS (9)
  1. LEUPLIN SR FOR INJECTION 11.25 MG [Suspect]
     Indication: BREAST CANCER
     Route: 058
     Dates: start: 20060720, end: 20090123
  2. LEUPLIN SR FOR INJECTION 11.25 MG [Suspect]
     Dates: start: 20051208, end: 20060622
  3. XELODA [Suspect]
     Indication: BREAST CANCER
     Route: 048
     Dates: start: 20051208
  4. TAXOTERE [Concomitant]
     Indication: BREAST CANCER
     Route: 042
  5. ENDOXAN [Concomitant]
     Indication: BREAST CANCER
     Route: 048
     Dates: start: 20051208
  6. NEUTROGIN [Concomitant]
     Indication: WHITE BLOOD CELL COUNT DECREASED
     Route: 058
  7. NAVELBINE [Concomitant]
     Indication: BREAST CANCER
     Route: 042
     Dates: start: 20070718, end: 20071018
  8. FEMARA [Concomitant]
     Indication: BREAST CANCER
     Route: 048
     Dates: start: 20071030, end: 20080204
  9. AROMASIN [Concomitant]
     Indication: BREAST CANCER
     Route: 048
     Dates: start: 20080219, end: 20080508

REACTIONS (2)
  - BREAST CANCER [None]
  - PALMAR-PLANTAR ERYTHRODYSAESTHESIA SYNDROME [None]
